FAERS Safety Report 7707889-9 (Version None)
Quarter: 2011Q3

REPORT INFORMATION
  Report Type: 
  Country: None (occurrence: None)
  Receive Date: 20110824
  Receipt Date: 20110812
  Transmission Date: 20111222
  Serious: Yes (Other)
  Sender: FDA-Public Use
  Company Number: US-MERCK-1108FRA00073

PATIENT
  Age: 39 Year
  Sex: Female

DRUGS (13)
  1. CYTARABINE [Suspect]
     Route: 065
     Dates: start: 20080407
  2. CYTARABINE [Suspect]
     Route: 065
     Dates: start: 20080515
  3. DAUNORUBICIN HCL [Suspect]
     Route: 065
     Dates: start: 20080601
  4. METHOTREXATE [Suspect]
     Indication: ACUTE MYELOID LEUKAEMIA
     Route: 065
  5. CYCLOSPORINE [Suspect]
     Indication: ACUTE MYELOID LEUKAEMIA
     Route: 065
  6. CANCIDAS [Suspect]
     Indication: ACUTE MYELOID LEUKAEMIA
     Route: 042
  7. DAUNORUBICIN HCL [Suspect]
     Route: 065
     Dates: start: 20080407
  8. BUSULFAN [Suspect]
     Indication: ACUTE MYELOID LEUKAEMIA
     Route: 042
     Dates: start: 20080705, end: 20080708
  9. CYTARABINE [Suspect]
     Route: 065
     Dates: start: 20080601
  10. AMSACRINE [Suspect]
     Indication: ACUTE MYELOID LEUKAEMIA
     Route: 065
     Dates: start: 20080515
  11. DAUNORUBICIN HCL [Suspect]
     Indication: ACUTE MYELOID LEUKAEMIA
     Route: 065
     Dates: start: 20080322
  12. CYCLOPHOSPHAMIDE [Suspect]
     Indication: ACUTE MYELOID LEUKAEMIA
     Route: 042
     Dates: start: 20080710, end: 20080711
  13. CYTARABINE [Suspect]
     Indication: ACUTE MYELOID LEUKAEMIA
     Route: 065
     Dates: start: 20080322

REACTIONS (1)
  - CYTOLYTIC HEPATITIS [None]
